FAERS Safety Report 21961079 (Version 1)
Quarter: 2023Q1

REPORT INFORMATION
  Report Type: Spontaneous
  Country: US (occurrence: US)
  Receive Date: 20230207
  Receipt Date: 20230207
  Transmission Date: 20230418
  Serious: Yes (Death, Hospitalization)
  Sender: FDA-Public Use
  Company Number: US-Melinta Therapeutics, LLC-US-MLNT-23-00079

PATIENT
  Age: 28 Year
  Sex: Female

DRUGS (1)
  1. METOPROLOL SUCCINATE [Suspect]
     Active Substance: METOPROLOL SUCCINATE
     Indication: Product used for unknown indication
     Dosage: NOT PROVIDED.
     Route: 048

REACTIONS (5)
  - Toxicity to various agents [Fatal]
  - Suspected suicide [Fatal]
  - Pulse absent [Fatal]
  - Hypotension [Fatal]
  - Bradycardia [Fatal]

NARRATIVE: CASE EVENT DATE: 20210101
